FAERS Safety Report 23099668 (Version 2)
Quarter: 2023Q4

REPORT INFORMATION
  Report Type: Report from Study
  Country: CN (occurrence: CN)
  Receive Date: 20231024
  Receipt Date: 20231101
  Transmission Date: 20240110
  Serious: Yes (Hospitalization)
  Sender: FDA-Public Use
  Company Number: CN-Eisai Medical Research-EC-2020-078386

PATIENT
  Age: 55 Year
  Sex: Female
  Weight: 53.5 kg

DRUGS (7)
  1. LENVATINIB [Suspect]
     Active Substance: LENVATINIB
     Indication: Endometrial cancer
     Route: 048
     Dates: start: 20200708, end: 20200728
  2. LENVATINIB [Suspect]
     Active Substance: LENVATINIB
     Dosage: DOSE FLUCTUATED
     Route: 048
     Dates: start: 20200731
  3. PEMBROLIZUMAB [Suspect]
     Active Substance: PEMBROLIZUMAB
     Indication: Endometrial cancer
     Route: 041
     Dates: start: 20200708, end: 20200708
  4. PEMBROLIZUMAB [Suspect]
     Active Substance: PEMBROLIZUMAB
     Route: 041
     Dates: start: 20200729, end: 20220630
  5. VALSARTAN [Concomitant]
     Active Substance: VALSARTAN
     Dates: start: 20200715, end: 20200722
  6. VALSARTAN [Concomitant]
     Active Substance: VALSARTAN
     Dates: start: 20200723
  7. AMLODIPINE BESYLATE [Concomitant]
     Active Substance: AMLODIPINE BESYLATE
     Dates: start: 20200723, end: 20200821

REACTIONS (1)
  - Arrhythmia [Recovered/Resolved]

NARRATIVE: CASE EVENT DATE: 20200728
